FAERS Safety Report 7466292-X (Version None)
Quarter: 2011Q2

REPORT INFORMATION
  Report Type: 
  Country: None (occurrence: None)
  Receive Date: 20110509
  Receipt Date: 20100727
  Transmission Date: 20111010
  Serious: No
  Sender: FDA-Public Use
  Company Number: US-ALEXION-A201000892

PATIENT
  Sex: Female

DRUGS (4)
  1. SOLIRIS [Suspect]
     Indication: PAROXYSMAL NOCTURNAL HAEMOGLOBINURIA
     Dosage: 900 MG, UNK
     Route: 042
  2. FOLIC ACID [Concomitant]
     Dosage: 1 MG, QD
     Route: 048
  3. IRON [Concomitant]
     Dosage: 1
     Route: 048
  4. TYLENOL (CAPLET) [Concomitant]
     Dosage: 1
     Route: 048

REACTIONS (8)
  - SLEEP DISORDER [None]
  - BACK PAIN [None]
  - JAUNDICE [None]
  - FATIGUE [None]
  - DIZZINESS [None]
  - HAEMOGLOBIN DECREASED [None]
  - HAEMOGLOBINURIA [None]
  - HEADACHE [None]
